FAERS Safety Report 6802740 (Version 7)
Quarter: 2012Q4

REPORT INFORMATION
  Report Type: Report from Study
  Country: SE (occurrence: SE)
  Receive Date: 20081103
  Receipt Date: 20121121
  Transmission Date: 20130627
  Serious: Yes (Other)
  Sender: FDA-Public Use
  Company Number: SE-ABBOTT-08P-150-0483843-00

PATIENT
  Age: 25 Year
  Sex: Male
  Weight: 130 kg

DRUGS (5)
  1. HUMIRA [Suspect]
     Indication: CROHN^S DISEASE
     Route: 058
     Dates: start: 20080904, end: 20081014
  2. HUMIRA [Suspect]
     Route: 058
     Dates: start: 20081104, end: 20081104
  3. HUMIRA [Suspect]
     Route: 058
     Dates: start: 20081218
  4. ZOLMITRIPTAN [Concomitant]
     Indication: MIGRAINE
     Dates: start: 20030323
  5. ASACOL [Concomitant]
     Indication: CROHN^S DISEASE
     Dates: start: 1999

REACTIONS (1)
  - Hidradenitis [Recovered/Resolved]
